FAERS Safety Report 8392347-1 (Version None)
Quarter: 2012Q2

REPORT INFORMATION
  Report Type: 
  Country: None (occurrence: None)
  Receive Date: 20120529
  Receipt Date: 20120514
  Transmission Date: 20120825
  Serious: Yes (Other)
  Sender: FDA-Public Use
  Company Number: US-ROCHE-263553

PATIENT
  Age: 67 Year
  Sex: Female

DRUGS (2)
  1. ROCEPHIN [Suspect]
     Indication: HAEMOPHILUS INFECTION
     Route: 042
  2. RIFAMPICIN [Concomitant]
     Indication: HAEMOPHILUS INFECTION
     Dosage: DISCONTIUNED ON THE 14TH DAY OF TREATMENT.
     Route: 048

REACTIONS (1)
  - HAEMOLYSIS [None]
